FAERS Safety Report 6693727-2 (Version None)
Quarter: 2010Q2

REPORT INFORMATION
  Report Type: 
  Country: None (occurrence: None)
  Receive Date: 20100423
  Receipt Date: 20100413
  Transmission Date: 20101027
  Serious: Yes (Life-Threatening, Hospitalization)
  Sender: FDA-Public Use
  Company Number: IT-NOVOPROD-306684

PATIENT
  Sex: Male

DRUGS (4)
  1. NOVORAPID FLEXPEN [Suspect]
     Dosage: 150 U, UNK
     Dates: start: 20100401
  2. NOVOMIX 30 FLEXPEN [Suspect]
     Dosage: 150 U, UNK
     Dates: start: 20100401
  3. PAROXETINA [Concomitant]
     Indication: DEPRESSION
     Dosage: 10 MG, UNK
  4. PAROXETINA [Concomitant]
     Dosage: 20 MG, QD IN HOSPITAL

REACTIONS (4)
  - DRUG TOXICITY [None]
  - HYPOGLYCAEMIA [None]
  - INTENTIONAL OVERDOSE [None]
  - SUICIDE ATTEMPT [None]
